FAERS Safety Report 22521382 (Version 2)
Quarter: 2023Q2

REPORT INFORMATION
  Report Type: Report from Study
  Country: CN (occurrence: CN)
  Receive Date: 20230605
  Receipt Date: 20230609
  Transmission Date: 20230722
  Serious: Yes (Hospitalization)
  Sender: FDA-Public Use
  Company Number: CN-JNJFOC-20230566903

PATIENT
  Age: 62 Year
  Sex: Male
  Weight: 75 kg

DRUGS (21)
  1. DARATUMUMAB [Suspect]
     Active Substance: DARATUMUMAB
     Indication: Plasma cell myeloma
     Route: 058
     Dates: start: 20221125, end: 20230407
  2. CARBAZOCHROME [Concomitant]
     Active Substance: CARBAZOCHROME
     Indication: Prophylaxis
     Dosage: 5
     Route: 048
     Dates: start: 20230408, end: 20230429
  3. RANITIDINE HYDROCHLORIDE [Concomitant]
     Active Substance: RANITIDINE HYDROCHLORIDE
     Indication: Prophylaxis
     Dosage: 50
     Route: 042
     Dates: start: 20230408, end: 20230509
  4. DEXAMETHASONE SODIUM PHOSPHATE [Concomitant]
     Active Substance: DEXAMETHASONE SODIUM PHOSPHATE
     Indication: Pyrexia
     Dosage: 5
     Route: 042
     Dates: start: 20230411
  5. MOXIFLOXACIN HYDROCHLORIDE [Concomitant]
     Active Substance: MOXIFLOXACIN HYDROCHLORIDE
     Indication: Prophylaxis
     Dosage: 250
     Route: 042
     Dates: start: 20230411, end: 20230423
  6. PREDNISONE ACETATE [Concomitant]
     Active Substance: PREDNISONE ACETATE
     Indication: Prophylaxis
     Dosage: 30
     Route: 048
     Dates: start: 20230415, end: 20230426
  7. GRANULOCYTE-MACROPHAGE COLONY-STIMULATING FACTOR [Concomitant]
     Active Substance: GRANULOCYTE-MACROPHAGE COLONY-STIMULATING FACTOR
     Indication: Neutrophil count decreased
     Dosage: 300
     Route: 042
     Dates: start: 20230422, end: 20230422
  8. CALCIUM GLUCONATE [Concomitant]
     Active Substance: CALCIUM GLUCONATE
     Indication: Prophylaxis
     Dosage: 20
     Route: 042
     Dates: start: 20230424, end: 20230425
  9. CHLORPHENIRAMINE MALEATE [Concomitant]
     Active Substance: CHLORPHENIRAMINE MALEATE
     Indication: Prophylaxis
     Dosage: 8
     Route: 048
     Dates: start: 20230425, end: 20230425
  10. ALBUMIN HUMAN [Concomitant]
     Active Substance: ALBUMIN HUMAN
     Indication: Hypoalbuminaemia
     Dosage: 10
     Route: 042
     Dates: start: 20230425, end: 20230425
  11. ALBUMIN HUMAN [Concomitant]
     Active Substance: ALBUMIN HUMAN
     Indication: Hypoalbuminaemia
     Dosage: 10
     Route: 042
     Dates: start: 20230427, end: 20230427
  12. POTASSIUM CHLORIDE [Concomitant]
     Active Substance: POTASSIUM CHLORIDE
     Indication: Prophylaxis
     Dosage: 10.5
     Route: 048
     Dates: start: 20230425, end: 20230429
  13. POTASSIUM CHLORIDE [Concomitant]
     Active Substance: POTASSIUM CHLORIDE
     Indication: Prophylaxis
     Dosage: 1
     Route: 048
     Dates: start: 20230426, end: 20230429
  14. FUROSEMIDE [Concomitant]
     Active Substance: FUROSEMIDE
     Indication: Prophylaxis
     Dosage: 20
     Route: 042
     Dates: start: 20230427, end: 20230427
  15. VORICONAZOLE [Concomitant]
     Active Substance: VORICONAZOLE
     Indication: Prophylaxis
     Dosage: 6000
     Route: 048
     Dates: start: 20230427, end: 20230427
  16. VORICONAZOLE [Concomitant]
     Active Substance: VORICONAZOLE
     Indication: Prophylaxis
     Route: 048
     Dates: start: 20230428, end: 20230510
  17. CEFTAZIDIME [Concomitant]
     Active Substance: CEFTAZIDIME
     Indication: Prophylaxis
     Dosage: 2
     Route: 042
     Dates: start: 20230427, end: 20230509
  18. TORSEMIDE [Concomitant]
     Active Substance: TORSEMIDE
     Indication: Prophylaxis
     Dosage: 10
     Route: 048
     Dates: start: 20230428, end: 20230509
  19. LACTULOSE [Concomitant]
     Active Substance: LACTULOSE
     Indication: Prophylaxis
     Dosage: 100
     Route: 048
     Dates: start: 20230501, end: 20230501
  20. KETOTIFEN FUMARATE [Concomitant]
     Active Substance: KETOTIFEN FUMARATE
     Indication: Prophylaxis
     Dosage: 1
     Route: 048
     Dates: start: 20230505, end: 20230505
  21. KETOTIFEN FUMARATE [Concomitant]
     Active Substance: KETOTIFEN FUMARATE
     Indication: Prophylaxis
     Route: 048
     Dates: start: 20230507, end: 20230510

REACTIONS (1)
  - Malaise [Recovering/Resolving]

NARRATIVE: CASE EVENT DATE: 20230522
